FAERS Safety Report 18017633 (Version 5)
Quarter: 2021Q4

REPORT INFORMATION
  Report Type: Spontaneous
  Country: US (occurrence: US)
  Receive Date: 20200713
  Receipt Date: 20211206
  Transmission Date: 20220304
  Serious: Yes (Hospitalization, Other)
  Sender: FDA-Public Use
  Company Number: US-GILEAD-2020-0479778

PATIENT
  Age: 64 Year
  Sex: Male
  Weight: 63.265 kg

DRUGS (30)
  1. VIREAD [Suspect]
     Active Substance: TENOFOVIR DISOPROXIL FUMARATE
     Indication: HIV infection
     Dosage: UNK
     Route: 048
     Dates: start: 2004, end: 2019
  2. TRUVADA [Suspect]
     Active Substance: EMTRICITABINE\TENOFOVIR DISOPROXIL FUMARATE
     Indication: HIV infection
     Dosage: UNK
     Route: 048
     Dates: start: 200406, end: 201903
  3. TRUVADA [Suspect]
     Active Substance: EMTRICITABINE\TENOFOVIR DISOPROXIL FUMARATE
     Dosage: UNK
     Route: 048
     Dates: start: 2010, end: 201909
  4. TRUVADA [Suspect]
     Active Substance: EMTRICITABINE\TENOFOVIR DISOPROXIL FUMARATE
     Dosage: UNK
     Route: 048
     Dates: start: 2010, end: 201903
  5. DESCOVY [Concomitant]
     Active Substance: EMTRICITABINE\TENOFOVIR ALAFENAMIDE FUMARATE
  6. ACETAMINOPHEN [Concomitant]
     Active Substance: ACETAMINOPHEN
  7. INDINAVIR [Concomitant]
     Active Substance: INDINAVIR
  8. EPIVIR [Concomitant]
     Active Substance: LAMIVUDINE
  9. INVIRASE [Concomitant]
     Active Substance: SAQUINAVIR MESYLATE
  10. NORVIR [Concomitant]
     Active Substance: RITONAVIR
  11. PREZCOBIX [Concomitant]
     Active Substance: COBICISTAT\DARUNAVIR ETHANOLATE
  12. VIDEX [Concomitant]
     Active Substance: DIDANOSINE
  13. ATORVASTATIN [Concomitant]
     Active Substance: ATORVASTATIN
  14. AZITHROMYCIN [Concomitant]
     Active Substance: AZITHROMYCIN
  15. VALACYCLOVIR HYDROCHLORIDE [Concomitant]
     Active Substance: VALACYCLOVIR HYDROCHLORIDE
  16. FLUOXETINE [Concomitant]
     Active Substance: FLUOXETINE HYDROCHLORIDE
  17. LAMIVUDINE [Concomitant]
     Active Substance: LAMIVUDINE
  18. FINASTERIDE [Concomitant]
     Active Substance: FINASTERIDE
  19. TRETINOIN [Concomitant]
     Active Substance: TRETINOIN
  20. NYSTOP [Concomitant]
     Active Substance: NYSTATIN
  21. BETAMETHASONE DIPROPIONATE\CLOTRIMAZOLE [Concomitant]
     Active Substance: BETAMETHASONE DIPROPIONATE\CLOTRIMAZOLE
  22. TERBINAFINE [Concomitant]
     Active Substance: TERBINAFINE
  23. DESONIDE [Concomitant]
     Active Substance: DESONIDE
  24. VITAMIN D NOS [Concomitant]
     Active Substance: VITAMIN D NOS
  25. LIPITOR [Concomitant]
     Active Substance: ATORVASTATIN CALCIUM
  26. DIDANOSINE [Concomitant]
     Active Substance: DIDANOSINE
  27. MUPIROCIN [Concomitant]
     Active Substance: MUPIROCIN
  28. TRAMADOL [Concomitant]
     Active Substance: TRAMADOL
  29. ONDANSETRON [Concomitant]
     Active Substance: ONDANSETRON
  30. SUPREP BOWEL PREP [Concomitant]
     Active Substance: MAGNESIUM SULFATE\POTASSIUM SULFATE\SODIUM SULFATE

REACTIONS (12)
  - Fracture [Unknown]
  - Osteoporosis [Not Recovered/Not Resolved]
  - Chronic kidney disease [Unknown]
  - Osteonecrosis [Unknown]
  - Fanconi syndrome acquired [Not Recovered/Not Resolved]
  - Renal failure [Unknown]
  - Bone loss [Unknown]
  - Tooth extraction [Unknown]
  - Emotional distress [Unknown]
  - Bone density decreased [Unknown]
  - Pain [Unknown]
  - Depression [Unknown]

NARRATIVE: CASE EVENT DATE: 20190101
